FAERS Safety Report 6897852-2 (Version None)
Quarter: 2010Q3

REPORT INFORMATION
  Report Type: 
  Country: None (occurrence: None)
  Receive Date: 20100802
  Receipt Date: 20070723
  Transmission Date: 20110219
  Serious: Yes (Other)
  Sender: FDA-Public Use
  Company Number: US-PFIZER INC-2007054253

PATIENT
  Sex: Male
  Weight: 77.272 kg

DRUGS (1)
  1. LYRICA [Suspect]
     Indication: CARDIOVASCULAR DISORDER
     Dates: start: 20070601, end: 20070601

REACTIONS (7)
  - DEPRESSED LEVEL OF CONSCIOUSNESS [None]
  - DRUG INTOLERANCE [None]
  - EXOPHTHALMOS [None]
  - FEELING ABNORMAL [None]
  - FEELING DRUNK [None]
  - MEDICATION ERROR [None]
  - SOMNOLENCE [None]
